FAERS Safety Report 6518695-5 (Version None)
Quarter: 2009Q4

REPORT INFORMATION
  Report Type: 
  Country: None (occurrence: None)
  Receive Date: 20091228
  Receipt Date: 20091217
  Transmission Date: 20100525
  Serious: Yes (Hospitalization)
  Sender: FDA-Public Use
  Company Number: US-ROCHE-675485

PATIENT
  Sex: Female
  Weight: 61 kg

DRUGS (6)
  1. PEGASYS [Suspect]
     Indication: HEPATITIS C
     Route: 058
     Dates: start: 20090831, end: 20091214
  2. RIBAVIRIN [Suspect]
     Indication: HEPATITIS C
     Dosage: 400 MG IN MORNING, 600 MG IN EVENING
     Route: 048
     Dates: start: 20090831, end: 20091217
  3. VERAPAMIL [Concomitant]
  4. NEURONTIN [Concomitant]
  5. AMITRIPTYLINE [Concomitant]
     Dosage: AS NECESSARY EVERY NIGHT.
  6. BACTRIM DS [Concomitant]

REACTIONS (2)
  - EMBOLIC STROKE [None]
  - WEIGHT DECREASED [None]
